FAERS Safety Report 8546128-6 (Version None)
Quarter: 2012Q3

REPORT INFORMATION
  Report Type: 
  Country: None (occurrence: None)
  Receive Date: 20120727
  Receipt Date: 20111209
  Transmission Date: 20120928
  Serious: No
  Sender: FDA-Public Use
  Company Number: US-ASTRAZENECA-2011SE75026

PATIENT
  Age: 41 Year
  Sex: Female
  Weight: 75.7 kg

DRUGS (4)
  1. CARBANASAPINE [Concomitant]
     Indication: DEPRESSION
  2. SEROQUEL [Suspect]
     Indication: BIPOLAR I DISORDER
     Dosage: ONE IN THE MORNING AND THREE IN THE EVENING
     Route: 048
  3. SELEXA [Concomitant]
     Indication: DEPRESSION
  4. SEROQUEL [Suspect]
     Indication: SCHIZOPHRENIA
     Dosage: ONE IN THE MORNING AND THREE IN THE EVENING
     Route: 048

REACTIONS (6)
  - INSOMNIA [None]
  - ABDOMINAL DISCOMFORT [None]
  - PERSONALITY DISORDER [None]
  - MALAISE [None]
  - DIARRHOEA [None]
  - DRUG DOSE OMISSION [None]
